FAERS Safety Report 22658649 (Version 1)
Quarter: 2023Q2

REPORT INFORMATION
  Report Type: Spontaneous
  Country: US (occurrence: US)
  Receive Date: 20230630
  Receipt Date: 20230630
  Transmission Date: 20230722
  Serious: No
  Sender: FDA-Public Use
  Company Number: US-SA-SAC20230628000732

PATIENT
  Age: 54 Year
  Sex: Female

DRUGS (1)
  1. DUPIXENT [Suspect]
     Active Substance: DUPILUMAB
     Indication: Neurodermatitis
     Dosage: 300 MG, OTHER
     Route: 058

REACTIONS (4)
  - Lacrimation increased [Unknown]
  - Eye pruritus [Unknown]
  - Dry eye [Unknown]
  - Eye irritation [Unknown]
